FAERS Safety Report 8208739-7 (Version None)
Quarter: 2012Q1

REPORT INFORMATION
  Report Type: 
  Country: None (occurrence: None)
  Receive Date: 20120314
  Receipt Date: 20120309
  Transmission Date: 20120608
  Serious: Yes (Hospitalization, Other)
  Sender: FDA-Public Use
  Company Number: US-BAYER-2011-094166

PATIENT
  Age: 33 Year
  Sex: Female
  Weight: 64.399 kg

DRUGS (11)
  1. YAZ [Suspect]
     Dosage: UNK
     Dates: start: 20100101
  2. YAZ [Suspect]
     Indication: ACNE
     Dosage: UNK
     Dates: start: 20060101, end: 20081201
  3. YASMIN [Suspect]
     Dosage: UNK
     Dates: start: 20071121
  4. DROSPIRENONE AND ETHINYL ESTRADIOL [Suspect]
     Indication: ACNE
     Dosage: UNK
     Dates: start: 20060101, end: 20081201
  5. DROSPIRENONE AND ETHINYL ESTRADIOL [Suspect]
     Dosage: UNK
     Dates: start: 20081108
  6. LEXAPRO [Concomitant]
     Dosage: 10 MG
  7. CLONAZEPAM [Concomitant]
     Dosage: 1 MG
  8. YASMIN [Suspect]
     Indication: ACNE
     Dosage: UNK
     Dates: start: 20060101, end: 20081201
  9. YASMIN [Suspect]
     Dosage: UNK
     Dates: start: 20080415
  10. YASMIN [Suspect]
     Dosage: UNK
     Dates: start: 20060901, end: 20061001
  11. YASMIN [Suspect]
     Dosage: UNK
     Dates: start: 20061230

REACTIONS (5)
  - CHOLELITHIASIS [None]
  - NAUSEA [None]
  - PAIN [None]
  - INJURY [None]
  - CHOLECYSTITIS CHRONIC [None]
